FAERS Safety Report 6907343-8 (Version None)
Quarter: 2010Q3

REPORT INFORMATION
  Report Type: 
  Country: None (occurrence: None)
  Receive Date: 20100802
  Receipt Date: 20100622
  Transmission Date: 20110219
  Serious: Yes (Other)
  Sender: FDA-Public Use
  Company Number: WAES 1006DEU00123

PATIENT
  Age: 54 Year
  Sex: Male

DRUGS (2)
  1. PROSCAR [Suspect]
     Indication: DIHYDROTESTOSTERONE INCREASED
     Dosage: 5 MG/DAILY; PO
     Route: 048
     Dates: start: 20010201, end: 20010601
  2. PROSCAR [Suspect]
     Indication: DIHYDROTESTOSTERONE INCREASED
     Dosage: 5 MG/DAILY; PO
     Route: 048
     Dates: start: 20010601, end: 20010701

REACTIONS (5)
  - INAPPROPRIATE SCHEDULE OF DRUG ADMINISTRATION [None]
  - LARYNGEAL CANCER [None]
  - LARYNGITIS [None]
  - LIBIDO DECREASED [None]
  - SQUAMOUS CELL CARCINOMA [None]
